FAERS Safety Report 9744820 (Version 1)
Quarter: 2013Q4

REPORT INFORMATION
  Report Type: Spontaneous
  Country: CA (occurrence: CA)
  Receive Date: 20131211
  Receipt Date: 20131211
  Transmission Date: 20140711
  Serious: Yes (Hospitalization, Other)
  Sender: FDA-Public Use
  Company Number: CA-AMGEN-CANSP2013086418

PATIENT
  Age: 74 Year
  Sex: Female
  Weight: 80 kg

DRUGS (15)
  1. ENBREL [Suspect]
     Indication: PRODUCT USED FOR UNKNOWN INDICATION
     Dosage: 50 MG, QWK
     Route: 058
  2. METHOTREXATE [Suspect]
     Indication: PRODUCT USED FOR UNKNOWN INDICATION
     Dosage: 25 MG, QWK
     Route: 058
  3. ACETYLSALICYLIC ACID [Concomitant]
     Dosage: UNK
  4. ATIVAN [Concomitant]
     Dosage: UNK
  5. ELAVIL                             /00002202/ [Concomitant]
     Dosage: UNK
  6. FUROSEMIDE [Concomitant]
     Dosage: UNK
  7. GABAPENTIN [Concomitant]
     Dosage: UNK
  8. JANUVIA [Concomitant]
     Dosage: UNK
  9. NADOLOL [Concomitant]
     Dosage: UNK
  10. PANTOPRAZOLE [Concomitant]
     Dosage: UNK
  11. SIMVASTATIN [Concomitant]
     Dosage: UNK
  12. SYNTHROID [Concomitant]
     Dosage: UNK
  13. VALSARTAN [Concomitant]
     Dosage: UNK
  14. VENLAFAXINE XR [Concomitant]
     Dosage: UNK
  15. VITAMIN B12                        /00056201/ [Concomitant]
     Dosage: UNK

REACTIONS (4)
  - Interstitial lung disease [Unknown]
  - Superinfection bacterial [Unknown]
  - Cough [Unknown]
  - Dyspnoea [Unknown]
